FAERS Safety Report 4913163-6 (Version None)
Quarter: 2006Q1

REPORT INFORMATION
  Report Type: 
  Country: None (occurrence: None)
  Receive Date: 20060210
  Receipt Date: 20060131
  Transmission Date: 20060701
  Serious: Yes (Hospitalization)
  Sender: FDA-Public Use
  Company Number: 800373

PATIENT
  Age: 73 Year
  Sex: Male
  Weight: 53.3 kg

DRUGS (10)
  1. EXTRANEAL [Suspect]
     Indication: RENAL FAILURE CHRONIC
     Dosage: 1500 ML; EVERY DAY; IP
     Route: 033
     Dates: start: 20040916, end: 20050207
  2. DIANEAL PD4 ULTRABAG [Concomitant]
  3. TAKEPRON [Concomitant]
  4. SIGMART [Concomitant]
  5. ISOSORBIDE MONONITRATE [Concomitant]
  6. ALFAROL [Concomitant]
  7. SLOW-K [Concomitant]
  8. ASPIRIN [Concomitant]
  9. PURESENNID [Concomitant]
  10. HALCION [Concomitant]

REACTIONS (2)
  - PERITONITIS BACTERIAL [None]
  - STAPHYLOCOCCAL INFECTION [None]
